FAERS Safety Report 6331230-X (Version None)
Quarter: 2009Q3

REPORT INFORMATION
  Report Type: 
  Country: None (occurrence: None)
  Receive Date: 20090827
  Receipt Date: 20090825
  Transmission Date: 20100115
  Serious: Yes (Hospitalization)
  Sender: FDA-Public Use
  Company Number: US-MERCK-0908USA03127

PATIENT
  Age: 48 Year
  Sex: Female

DRUGS (6)
  1. SINGULAIR [Suspect]
     Indication: ASTHMA
     Route: 048
     Dates: end: 20040101
  2. SINGULAIR [Suspect]
     Route: 048
     Dates: start: 20050715, end: 20090101
  3. GLUCOPHAGE [Concomitant]
     Route: 065
  4. GLIPIZIDE [Concomitant]
     Route: 065
  5. PLAQUENIL [Concomitant]
     Route: 065
  6. PROVENTIL-HFA [Concomitant]
     Route: 065

REACTIONS (5)
  - BRAIN HYPOXIA [None]
  - DIABETES MELLITUS [None]
  - INTERVERTEBRAL DISC DEGENERATION [None]
  - RENAL FAILURE [None]
  - SYSTEMIC LUPUS ERYTHEMATOSUS [None]
